FAERS Safety Report 10051619 (Version 5)
Quarter: 2014Q4

REPORT INFORMATION
  Report Type: Spontaneous
  Country: US (occurrence: None)
  Receive Date: 20140331
  Receipt Date: 20141021
  Transmission Date: 20150528
  Serious: Yes (Hospitalization)
  Sender: FDA-Public Use
  Company Number: US-000870

PATIENT
  Age: 69 Year
  Sex: Female

DRUGS (21)
  1. LEVOTHYROXINE [Concomitant]
     Active Substance: LEVOTHYROXINE
  2. ASPIRIN. [Concomitant]
     Active Substance: ASPIRIN
  3. ANTIHYPERTENSIVES [Concomitant]
     Active Substance: UNSPECIFIED INGREDIENT
  4. GATTEX [Suspect]
     Active Substance: TEDUGLUTIDE\WATER
     Indication: SHORT-BOWEL SYNDROME
     Route: 058
     Dates: start: 20131031, end: 201311
  5. MAGNESIUM [Concomitant]
     Active Substance: MAGNESIUM
  6. MAGNESIUM OXIDE. [Concomitant]
     Active Substance: MAGNESIUM OXIDE
  7. ZOLOFT [Concomitant]
     Active Substance: SERTRALINE HYDROCHLORIDE
  8. IMODIUM [Concomitant]
     Active Substance: LOPERAMIDE HYDROCHLORIDE
  9. LOMOTIL /00034001/ [Concomitant]
  10. IRON [Concomitant]
     Active Substance: IRON
  11. ROSMARINUS OFFICINALIS [Concomitant]
  12. SKIN HAIR NAILS [Concomitant]
  13. PROBIOTICS NOS [Concomitant]
     Active Substance: PROBIOTICS NOS
  14. FISH OIL [Concomitant]
     Active Substance: FISH OIL
  15. HYOSCYAMINE [Concomitant]
     Active Substance: HYOSCYAMINE
  16. VITAMIN D3 [Concomitant]
     Active Substance: CHOLECALCIFEROL
  17. MULTIVITAMIN /00097801/ [Concomitant]
     Active Substance: VITAMINS
  18. CALCIUM [Concomitant]
     Active Substance: CALCIUM
  19. SYNTHROID [Concomitant]
     Active Substance: LEVOTHYROXINE SODIUM
  20. SOLUTIONS FOR PARENTERAL NUTRITION [Concomitant]
     Active Substance: AMINO ACIDS\DEXTROSE\ELECTROLYTES NOS
  21. BIOTIN [Concomitant]
     Active Substance: BIOTIN

REACTIONS (18)
  - Injection site pruritus [None]
  - Therapy change [None]
  - Stoma site irritation [None]
  - Decreased appetite [None]
  - Condition aggravated [None]
  - Weight decreased [None]
  - Drug ineffective [None]
  - Pain [None]
  - Diarrhoea [None]
  - Injection site erythema [None]
  - Small intestinal obstruction [None]
  - Injection site urticaria [None]
  - Nausea [None]
  - Flatulence [None]
  - Abdominal pain [None]
  - Abdominal distension [None]
  - Drug effect decreased [None]
  - Injection site irritation [None]

NARRATIVE: CASE EVENT DATE: 201311
